FAERS Safety Report 15346415 (Version 1)
Quarter: 2018Q3

REPORT INFORMATION
  Report Type: Spontaneous
  Country: US (occurrence: US)
  Receive Date: 20180904
  Receipt Date: 20180904
  Transmission Date: 20181010
  Serious: No
  Sender: FDA-Public Use
  Company Number: US-PFIZER INC-2018355043

PATIENT
  Age: 70 Year
  Sex: Female

DRUGS (2)
  1. BIAXIN [Interacting]
     Active Substance: CLARITHROMYCIN
     Indication: SINUSITIS
     Dosage: UNK
  2. IBRANCE [Suspect]
     Active Substance: PALBOCICLIB
     Dosage: UNK

REACTIONS (1)
  - Drug interaction [Unknown]
